FAERS Safety Report 14586191 (Version 1)
Quarter: 2018Q1

REPORT INFORMATION
  Report Type: Spontaneous
  Country: US (occurrence: US)
  Receive Date: 20180301
  Receipt Date: 20180301
  Transmission Date: 20180509
  Serious: Yes (Other)
  Sender: FDA-Public Use
  Company Number: US-MALLINCKRODT-T201800813

PATIENT
  Sex: Female

DRUGS (1)
  1. FENTANYL TRANSDERMAL SYSTEM [Suspect]
     Active Substance: FENTANYL
     Indication: PRODUCT USED FOR UNKNOWN INDICATION
     Dosage: 12MCG EVERY 72 HOURS
     Route: 062

REACTIONS (6)
  - Oesophageal stenosis [Unknown]
  - Euphoric mood [Unknown]
  - Heart rate increased [Unknown]
  - Drug intolerance [Unknown]
  - Chest discomfort [Unknown]
  - Pruritus [Unknown]
